FAERS Safety Report 8889201 (Version 1)
Quarter: 2012Q4

REPORT INFORMATION
  Report Type: 
  Country: DE (occurrence: DE)
  Receive Date: 20121106
  Receipt Date: 20121106
  Transmission Date: 20130627
  Serious: Yes (Hospitalization, Other)
  Sender: FDA-Public Use
  Company Number: DE-ROCHE-1152543

PATIENT
  Age: 80 Year
  Sex: Female

DRUGS (3)
  1. LUCENTIS [Suspect]
     Indication: AGE-RELATED MACULAR DEGENERATION
     Route: 050
     Dates: start: 20120307
  2. LUCENTIS [Suspect]
     Route: 050
     Dates: start: 20120404
  3. LUCENTIS [Suspect]
     Route: 050
     Dates: start: 20120502

REACTIONS (4)
  - Eye haemorrhage [Unknown]
  - Blindness [Unknown]
  - Disorientation [Unknown]
  - Photophobia [Unknown]
